FAERS Safety Report 4849765-5 (Version None)
Quarter: 2005Q4

REPORT INFORMATION
  Report Type: 
  Country: None (occurrence: None)
  Receive Date: 20051115
  Receipt Date: 20050802
  Transmission Date: 20060501
  Serious: No
  Sender: FDA-Public Use
  Company Number: S05-USA-03803-01

PATIENT
  Age: 83 Year
  Sex: Female

DRUGS (11)
  1. NAMENDA [Suspect]
     Indication: DEMENTIA
     Dosage: 5 MG BID PO
     Route: 048
     Dates: start: 20050725
  2. REMINYL (GALANTAMINE) [Concomitant]
  3. ULTRACET [Concomitant]
  4. LEXAPRO [Concomitant]
  5. FOSAMAX [Concomitant]
  6. TOPROL-XL [Concomitant]
  7. NEURONTIN [Concomitant]
  8. ACETAMINOPHEN [Concomitant]
  9. ASPIRIN [Concomitant]
  10. ANTIVERT [Concomitant]
  11. MULTI-VITAMIN [Concomitant]

REACTIONS (4)
  - ASTHENIA [None]
  - FATIGUE [None]
  - PAIN [None]
  - SOMNOLENCE [None]
